FAERS Safety Report 7460910-8 (Version None)
Quarter: 2011Q2

REPORT INFORMATION
  Report Type: 
  Country: None (occurrence: None)
  Receive Date: 20110505
  Receipt Date: 20110426
  Transmission Date: 20111010
  Serious: Yes (Other)
  Sender: FDA-Public Use
  Company Number: FR-ASTRAZENECA-2011SE24118

PATIENT
  Age: 85 Year
  Sex: Female

DRUGS (4)
  1. SERETIDE [Concomitant]
     Dosage: 250/25 MICROG/DOSE
     Route: 055
  2. CRESTOR [Suspect]
     Route: 048
  3. TAREG [Suspect]
     Route: 048
     Dates: end: 20110125
  4. FLECAINE [Suspect]
     Route: 048

REACTIONS (1)
  - INTERSTITIAL LUNG DISEASE [None]
